FAERS Safety Report 9625543 (Version 2)
Quarter: 2014Q4

REPORT INFORMATION
  Report Type: Report from Study
  Country: FR (occurrence: FR)
  Receive Date: 20131016
  Receipt Date: 20141124
  Transmission Date: 20150529
  Serious: Yes (Death, Hospitalization)
  Sender: FDA-Public Use
  Company Number: FR-BAYER-2013-121920

PATIENT
  Age: 76 Year
  Sex: Male

DRUGS (1)
  1. REGORAFENIB [Suspect]
     Active Substance: REGORAFENIB
     Indication: COLORECTAL CANCER METASTATIC
     Dosage: 160 MG, QD
     Route: 048
     Dates: start: 20130213, end: 20130305

REACTIONS (3)
  - Hypertension [Not Recovered/Not Resolved]
  - Colorectal cancer metastatic [Fatal]
  - Hypertension [Not Recovered/Not Resolved]

NARRATIVE: CASE EVENT DATE: 2013
